FAERS Safety Report 7411517-X (Version None)
Quarter: 2011Q2

REPORT INFORMATION
  Report Type: 
  Country: None (occurrence: None)
  Receive Date: 20110413
  Receipt Date: 20110411
  Transmission Date: 20111010
  Serious: Yes (Death, Other)
  Sender: FDA-Public Use
  Company Number: PHHY2010CA28029

PATIENT
  Sex: Female

DRUGS (15)
  1. ADVAIR DISKUS 100/50 [Concomitant]
  2. SPIRIVA [Concomitant]
  3. ACLASTA [Suspect]
     Indication: BARRETT'S OESOPHAGUS
  4. ACETAMINOPHEN [Concomitant]
  5. HYDROCHLOROTHIAZIDE [Concomitant]
     Dosage: 12.5 MG, UNK
  6. PARIET [Concomitant]
     Dosage: 20 MG, UNK
  7. ATIVAN [Concomitant]
  8. ACLASTA [Suspect]
     Indication: OSTEOPOROSIS
     Dosage: 5 MG
     Route: 042
     Dates: start: 20100422
  9. NORVASC [Concomitant]
     Dosage: 5 MG, UNK
  10. CALTRATE 600 + VITAMIN D [Concomitant]
  11. PLAQUENIL [Concomitant]
     Dosage: 200 MG, QD
  12. PENTOXIFYLLINE [Concomitant]
     Dosage: 400 MG, UNK
  13. ZOPICLONE [Concomitant]
     Dosage: 7.5 MG, UNK
  14. AVAPRO [Concomitant]
     Dosage: 150 MG, QD
  15. PREDNISONE [Concomitant]

REACTIONS (6)
  - SYSTEMIC LUPUS ERYTHEMATOSUS [None]
  - PYREXIA [None]
  - MYALGIA [None]
  - DEATH [None]
  - INFLUENZA LIKE ILLNESS [None]
  - NAUSEA [None]
